FAERS Safety Report 10400248 (Version 2)
Quarter: 2014Q3

REPORT INFORMATION
  Report Type: Spontaneous
  Country: AU (occurrence: AU)
  Receive Date: 20140821
  Receipt Date: 20140930
  Transmission Date: 20150326
  Serious: Yes (Other)
  Sender: FDA-Public Use
  Company Number: AU-ASTRAZENECA-2014SE56742

PATIENT
  Age: 79 Year
  Sex: Male

DRUGS (3)
  1. ZOLADEX [Suspect]
     Active Substance: GOSERELIN ACETATE
     Route: 058
     Dates: start: 201405
  2. ZOLADEX [Suspect]
     Active Substance: GOSERELIN ACETATE
     Dosage: SECOND DOSE
     Route: 058
     Dates: start: 20140724
  3. COSUDEX [Suspect]
     Active Substance: BICALUTAMIDE
     Route: 048

REACTIONS (2)
  - Blood testosterone increased [Unknown]
  - Malignant neoplasm progression [Unknown]

NARRATIVE: CASE EVENT DATE: 201405
